APPROVED DRUG PRODUCT: VORICONAZOLE
Active Ingredient: VORICONAZOLE
Strength: 200MG/20ML (10MG/ML)
Dosage Form/Route: SOLUTION;INTRAVENOUS
Application: A220043 | Product #001
Applicant: HAINAN POLY PHARMACEUTICAL CO LTD
Approved: Nov 14, 2025 | RLD: No | RS: Yes | Type: RX